FAERS Safety Report 10669497 (Version 5)
Quarter: 2017Q3

REPORT INFORMATION
  Report Type: Report from Study
  Country: US (occurrence: US)
  Receive Date: 20141222
  Receipt Date: 20170915
  Transmission Date: 20171127
  Serious: Yes (Hospitalization)
  Sender: FDA-Public Use
  Company Number: US-ACTELION-A-US2014-109839

PATIENT
  Age: 2 Year
  Sex: Female

DRUGS (15)
  1. TRACLEER [Suspect]
     Active Substance: BOSENTAN
     Dosage: 21 UNK, UNK
     Route: 048
  2. SILDENAFIL. [Concomitant]
     Active Substance: SILDENAFIL
     Indication: PULMONARY ARTERIAL HYPERTENSION
     Dosage: 11.25 MG, Q8H
     Route: 048
     Dates: start: 2013
  3. CLINDAMYCIN. [Concomitant]
     Active Substance: CLINDAMYCIN
     Dosage: 180 MG, TID
     Dates: start: 201502, end: 201502
  4. ASPIRIN. [Concomitant]
     Active Substance: ASPIRIN
     Dosage: 81 MG, QD
  5. CHLOROTHIAZIDE. [Concomitant]
     Active Substance: CHLOROTHIAZIDE
     Dosage: 175 MG, Q12HRS
  6. POTASSIUM CHLORIDE. [Concomitant]
     Active Substance: POTASSIUM CHLORIDE
     Dosage: 16 MCG, Q8H
     Route: 048
     Dates: start: 201502
  7. TRACLEER [Suspect]
     Active Substance: BOSENTAN
     Dosage: 20 MG, BID
     Route: 048
     Dates: start: 201304
  8. SILDENAFIL. [Concomitant]
     Active Substance: SILDENAFIL
     Dosage: 20 MG, TID
  9. BUMETANIDE. [Concomitant]
     Active Substance: BUMETANIDE
     Dosage: 1.8 MG, UNK
     Route: 048
     Dates: start: 2013
  10. SPIRONOLACTONE. [Concomitant]
     Active Substance: SPIRONOLACTONE
     Dosage: 20 MG, BID
     Route: 048
     Dates: start: 201502
  11. BUDESONIDE. [Concomitant]
     Active Substance: BUDESONIDE
     Dosage: 2 ML, BID
     Route: 055
     Dates: start: 2013
  12. POTASSIUM CHLORIDE. [Concomitant]
     Active Substance: POTASSIUM CHLORIDE
     Dosage: 10 MEQ, Q12HRS
  13. LASIX [Concomitant]
     Active Substance: FUROSEMIDE
     Dosage: 18 MG, Q6HRS
  14. TRACLEER [Suspect]
     Active Substance: BOSENTAN
     Indication: PULMONARY ARTERIAL HYPERTENSION
     Dosage: 19 MG, BID
     Route: 048
     Dates: start: 201304
  15. CHLOROTHIAZIDE. [Concomitant]
     Active Substance: CHLOROTHIAZIDE
     Dosage: 180 MG, BID
     Route: 048
     Dates: start: 201502

REACTIONS (5)
  - Pleural effusion [Recovered/Resolved]
  - Cavopulmonary anastomosis [Recovering/Resolving]
  - Pneumonia [Recovering/Resolving]
  - Cardiac operation [Recovered/Resolved]
  - Lung consolidation [Recovering/Resolving]

NARRATIVE: CASE EVENT DATE: 20150120
